FAERS Safety Report 24034723 (Version 2)
Quarter: 2024Q3

REPORT INFORMATION
  Report Type: Report from Study
  Country: US (occurrence: US)
  Receive Date: 20240701
  Receipt Date: 20240710
  Transmission Date: 20241017
  Serious: No
  Sender: ROCHE
  Company Number: US-ROCHE-3566434

PATIENT
  Age: 18 Year
  Sex: Female
  Weight: 18.14 kg

DRUGS (1)
  1. EVRYSDI [Suspect]
     Active Substance: RISDIPLAM
     Indication: Spinal muscular atrophy
     Dosage: 100 ML BOTTLE, PRESCRIBED DOSE 5 MG DAILY
     Route: 048

REACTIONS (2)
  - Nasopharyngitis [Unknown]
  - Cough [Recovered/Resolved]
